FAERS Safety Report 7401538-5 (Version None)
Quarter: 2011Q2

REPORT INFORMATION
  Report Type: 
  Country: None (occurrence: None)
  Receive Date: 20110408
  Receipt Date: 20110329
  Transmission Date: 20111010
  Serious: Yes (Hospitalization)
  Sender: FDA-Public Use
  Company Number: US-BIOGENIDEC-2011BI011947

PATIENT
  Age: 55 Year
  Sex: Female

DRUGS (1)
  1. TYSABRI [Suspect]
     Indication: MULTIPLE SCLEROSIS
     Route: 042
     Dates: start: 20080609

REACTIONS (7)
  - COORDINATION ABNORMAL [None]
  - GAIT DISTURBANCE [None]
  - ANEURYSM [None]
  - TRIGEMINAL NEURALGIA [None]
  - AMNESIA [None]
  - CENTRAL NERVOUS SYSTEM LESION [None]
  - EYE PAIN [None]
